FAERS Safety Report 9650792 (Version 1)
Quarter: 2013Q4

REPORT INFORMATION
  Report Type: Spontaneous
  Country: US (occurrence: None)
  Receive Date: 20131025
  Receipt Date: 20131025
  Transmission Date: 20140711
  Serious: Yes (Hospitalization)
  Sender: FDA-Public Use
  Company Number: None

PATIENT
  Age: 60 Year
  Sex: Male
  Weight: 79.4 kg

DRUGS (18)
  1. ARGATROBAN [Suspect]
     Indication: HEPARIN-INDUCED THROMBOCYTOPENIA
     Dosage: 1.35 MCG/KG/MIN, INTRAVENOUS
     Route: 042
     Dates: start: 20110606
  2. ALBUTEROL [Concomitant]
  3. ATROPINE-DIPHENOXYLATE [Concomitant]
  4. CASPOFUNGIN [Concomitant]
  5. CETYLPYRIDIUM-MENTHOL [Concomitant]
  6. CHLORHEXIDINE [Concomitant]
  7. ESMOLOL [Concomitant]
  8. HYDROMORPHONE [Concomitant]
  9. IPRATROPIUM [Concomitant]
  10. LORAZEPAM [Concomitant]
  11. NOREPINEPHRINE [Concomitant]
  12. OCULAR LUBRICANT [Concomitant]
  13. OXYCODONE [Concomitant]
  14. RANITIDINE [Concomitant]
  15. TESTOSTERONE [Concomitant]
  16. ACETAMINOPHEN [Concomitant]
  17. URSODIOL [Concomitant]
  18. TRYPSAN-BALSAM PERU-CSTOR OIL [Concomitant]

REACTIONS (3)
  - Blood pressure decreased [None]
  - Activated partial thromboplastin time prolonged [None]
  - Chest pain [None]
